FAERS Safety Report 13234230 (Version 1)
Quarter: 2017Q1

REPORT INFORMATION
  Report Type: Spontaneous
  Country: US (occurrence: US)
  Receive Date: 20170214
  Receipt Date: 20170214
  Transmission Date: 20170428
  Serious: No
  Sender: FDA-Public Use
  Company Number: None

PATIENT
  Age: 49 Year
  Sex: Male
  Weight: 80.81 kg

DRUGS (4)
  1. LOTREL [Suspect]
     Active Substance: AMLODIPINE BESYLATE\BENAZEPRIL HYDROCHLORIDE
     Indication: PRODUCT USED FOR UNKNOWN INDICATION
     Dosage: 5/25MG 120 PO BID BID?OUT OF LOTREL
     Route: 048
     Dates: start: 20150401
  2. FLONASE [Concomitant]
     Active Substance: FLUTICASONE PROPIONATE
  3. METFORMIN [Concomitant]
     Active Substance: METFORMIN HYDROCHLORIDE
  4. APRODINE [Concomitant]
     Active Substance: PSEUDOEPHEDRINE HYDROCHLORIDE\TRIPROLIDINE HYDROCHLORIDE

REACTIONS (3)
  - Hyperhidrosis [None]
  - Dizziness [None]
  - Product substitution issue [None]

NARRATIVE: CASE EVENT DATE: 20070914
